FAERS Safety Report 5234535-9 (Version None)
Quarter: 2007Q1

REPORT INFORMATION
  Report Type: 
  Country: None (occurrence: None)
  Receive Date: 20070209
  Receipt Date: 20070208
  Transmission Date: 20070707
  Serious: Yes (Life-Threatening, Hospitalization)
  Sender: FDA-Public Use
  Company Number: US-ELI_LILLY_AND_COMPANY-US200608005230

PATIENT
  Sex: Female
  Weight: 56 kg

DRUGS (6)
  1. CYMBALTA [Suspect]
     Indication: PAIN MANAGEMENT
     Dosage: 30 MG, DAILY (1/D)
     Dates: start: 20060720, end: 20060727
  2. CYMBALTA [Suspect]
     Dosage: 60 MG, DAILY (1/D)
     Dates: start: 20060728, end: 20060802
  3. DURAGESIC [Concomitant]
     Dosage: 75 UNK, UNK
  4. RITALIN [Concomitant]
     Dosage: 20 MG, 3/D
  5. DEPO-PROVERA [Concomitant]
     Dosage: UNK, OTHER
  6. PERCOCET [Concomitant]
     Dates: start: 20060802, end: 20060802

REACTIONS (2)
  - HEPATITIS [None]
  - PANCREATITIS [None]
